FAERS Safety Report 17262079 (Version 5)
Quarter: 2020Q1

REPORT INFORMATION
  Report Type: Spontaneous
  Country: US (occurrence: US)
  Receive Date: 20200113
  Receipt Date: 20200305
  Transmission Date: 20200409
  Serious: Yes (Other)
  Sender: FDA-Public Use
  Company Number: US-009507513-2001USA003151

PATIENT
  Age: 27 Year
  Sex: Female
  Weight: 112 kg

DRUGS (2)
  1. NEXPLANON [Suspect]
     Active Substance: ETONOGESTREL
     Dosage: 1 DOSAGE FORM, 3 YEARS, RIGHT UPPER ARM
     Route: 059
     Dates: start: 20200106, end: 20200206
  2. NEXPLANON [Suspect]
     Active Substance: ETONOGESTREL
     Indication: CONTRACEPTION
     Dosage: ONE ROD (1 DF)
     Route: 059
     Dates: end: 20200106

REACTIONS (4)
  - Pain in extremity [Recovered/Resolved]
  - Medical device site discomfort [Recovered/Resolved]
  - Device deployment issue [Recovered/Resolved]
  - Device dislocation [Recovered/Resolved]

NARRATIVE: CASE EVENT DATE: 20200106
